FAERS Safety Report 13100935 (Version 7)
Quarter: 2017Q1

REPORT INFORMATION
  Report Type: Report from Study
  Country: NO (occurrence: NO)
  Receive Date: 20170110
  Receipt Date: 20170317
  Transmission Date: 20170428
  Serious: Yes (Hospitalization, Other)
  Sender: FDA-Public Use
  Company Number: NO-PFIZER INC-2016571868

PATIENT
  Age: 68 Year
  Sex: Female

DRUGS (4)
  1. AFINITOR [Suspect]
     Active Substance: EVEROLIMUS
     Dosage: 10 MG, 1X/DAY (QD)
     Dates: start: 20161124, end: 20161227
  2. AFINITOR [Suspect]
     Active Substance: EVEROLIMUS
     Indication: BREAST CANCER METASTATIC
     Dosage: 5 MG, 1X/DAY (QD)
     Route: 048
     Dates: start: 20160810, end: 20160824
  3. AFINITOR [Suspect]
     Active Substance: EVEROLIMUS
     Dosage: 10 MG, 1X/DAY (QD)
     Dates: start: 20160825, end: 20161114
  4. AROMASIN [Suspect]
     Active Substance: EXEMESTANE
     Indication: BREAST CANCER
     Dosage: 25 MG, 1X/DAY
     Route: 048
     Dates: start: 20160810

REACTIONS (16)
  - Sepsis [Recovered/Resolved]
  - Ascites [Unknown]
  - Urinary tract infection [Recovered/Resolved]
  - Infection [Recovered/Resolved]
  - Infection [Recovered/Resolved]
  - Neutrophil count increased [Unknown]
  - Abdominal pain [Recovered/Resolved]
  - Headache [Recovered/Resolved]
  - Nausea [Recovered/Resolved]
  - Escherichia urinary tract infection [Unknown]
  - Malaise [Recovered/Resolved]
  - Urosepsis [Not Recovered/Not Resolved]
  - Klebsiella infection [Unknown]
  - Pyrexia [Not Recovered/Not Resolved]
  - White blood cell count increased [Unknown]
  - Abdominal pain [Recovered/Resolved]

NARRATIVE: CASE EVENT DATE: 20160901
